FAERS Safety Report 11101198 (Version 2)
Quarter: 2015Q2

REPORT INFORMATION
  Report Type: Spontaneous
  Country: SI (occurrence: SI)
  Receive Date: 20150508
  Receipt Date: 20150624
  Transmission Date: 20150821
  Serious: Yes (Death, Other)
  Sender: FDA-Public Use
  Company Number: SI-ABBVIE-15P-261-1388449-00

PATIENT
  Sex: Female

DRUGS (1)
  1. DUODOPA [Suspect]
     Active Substance: CARBIDOPA\LEVODOPA
     Indication: PARKINSON^S DISEASE
     Route: 050
     Dates: start: 2014, end: 2015

REACTIONS (3)
  - Cardiopulmonary failure [Fatal]
  - Respiratory tract infection [Fatal]
  - Cardiac arrest [Fatal]
